FAERS Safety Report 8589454-7 (Version None)
Quarter: 2012Q3

REPORT INFORMATION
  Report Type: 
  Country: None (occurrence: None)
  Receive Date: 20120813
  Receipt Date: 20120801
  Transmission Date: 20120928
  Serious: Yes (Hospitalization, Disabling, Other)
  Sender: FDA-Public Use
  Company Number: US-MERCK-1201USA02551

PATIENT

DRUGS (13)
  1. CALCIUM (UNSPECIFIED) [Concomitant]
     Indication: OSTEOPOROSIS
     Dosage: 600 MG, QD
  2. FOSAMAX [Suspect]
     Dosage: 70 MG, UNK
     Dates: start: 20080930
  3. SPIRIVA [Concomitant]
     Indication: CHRONIC OBSTRUCTIVE PULMONARY DISEASE
     Dosage: 18 ?G, QD
     Route: 055
     Dates: start: 20080201
  4. ALBUTEROL [Concomitant]
     Indication: CHRONIC OBSTRUCTIVE PULMONARY DISEASE
     Dosage: UNK UNK, PRN
     Route: 055
  5. FOSAMAX [Suspect]
     Dosage: 70 MG, UNK
     Route: 048
     Dates: start: 20080407, end: 20090501
  6. SYNTHROID [Concomitant]
     Indication: HYPOTHYROIDISM
     Dosage: 0.112 MG, QD
     Dates: start: 19950101
  7. CHOLESTEROL [Concomitant]
     Indication: BLOOD CHOLESTEROL INCREASED
     Dates: start: 19970101
  8. FLUTICASONE PROPIONATE [Concomitant]
     Indication: CHRONIC OBSTRUCTIVE PULMONARY DISEASE
     Dosage: 250-50
     Route: 055
     Dates: start: 20080201
  9. FOSAMAX [Suspect]
     Dosage: 70 MG, QW
     Route: 048
     Dates: start: 20000101
  10. VITAMIN D [Concomitant]
     Indication: OSTEOPOROSIS
     Dosage: 200-600
     Route: 048
  11. PAXIL [Concomitant]
     Indication: PANIC ATTACK
     Dosage: 10-40
     Route: 048
     Dates: start: 19970103
  12. FOSAMAX [Suspect]
     Indication: OSTEOPOROSIS
     Dosage: 10 MG, QD
     Route: 048
     Dates: start: 19980401
  13. ATIVAN [Concomitant]
     Indication: PANIC ATTACK
     Dosage: 0.5 MG, PRN
     Route: 048

REACTIONS (70)
  - HYPERTENSION [None]
  - COCCYDYNIA [None]
  - LACERATION [None]
  - RECTAL ADENOMA [None]
  - LIPOMA [None]
  - RECTAL POLYP [None]
  - CATARACT [None]
  - EMPHYSEMA [None]
  - ACNE [None]
  - BONE LESION [None]
  - TOOTH EROSION [None]
  - CONSTIPATION [None]
  - DIZZINESS POSTURAL [None]
  - TEMPOROMANDIBULAR JOINT SYNDROME [None]
  - TOOTH LOSS [None]
  - TOOTH INFECTION [None]
  - HEAD INJURY [None]
  - AUTOIMMUNE THYROIDITIS [None]
  - OSTEOARTHRITIS [None]
  - TOOTH DISORDER [None]
  - ASTHMA [None]
  - DEPRESSION [None]
  - DEVICE BREAKAGE [None]
  - TOOTH EXTRACTION [None]
  - DIZZINESS [None]
  - BACK PAIN [None]
  - OSTEONECROSIS OF JAW [None]
  - RASH MACULAR [None]
  - PERIODONTITIS [None]
  - FALL [None]
  - FIBROCYSTIC BREAST DISEASE [None]
  - ARRHYTHMIA [None]
  - POOR DENTAL CONDITION [None]
  - ORAL DISORDER [None]
  - RECTOCELE [None]
  - EXCORIATION [None]
  - POST CONCUSSION SYNDROME [None]
  - DIVERTICULUM INTESTINAL [None]
  - NEUROPATHY PERIPHERAL [None]
  - SPINAL COMPRESSION FRACTURE [None]
  - ANXIETY [None]
  - DENTAL CARIES [None]
  - GINGIVITIS [None]
  - RIB FRACTURE [None]
  - WEIGHT INCREASED [None]
  - INSOMNIA [None]
  - CONTUSION [None]
  - CHEST PAIN [None]
  - SEBORRHOEIC KERATOSIS [None]
  - VERTIGO POSITIONAL [None]
  - CHANGE OF BOWEL HABIT [None]
  - MUSCULAR WEAKNESS [None]
  - BLISTER [None]
  - TOOTH FRACTURE [None]
  - PAIN [None]
  - BRONCHITIS [None]
  - GINGIVAL ULCERATION [None]
  - ECTOPIC KIDNEY [None]
  - CAROTID ARTERY ANEURYSM [None]
  - DENTAL PROSTHESIS USER [None]
  - ORAL INFECTION [None]
  - GINGIVAL BLEEDING [None]
  - ADJUSTMENT DISORDER [None]
  - FATIGUE [None]
  - FAMILY STRESS [None]
  - TINNITUS [None]
  - SKIN PAPILLOMA [None]
  - CORONARY ARTERY DISEASE [None]
  - MALOCCLUSION [None]
  - DYSPEPSIA [None]
